FAERS Safety Report 24781409 (Version 1)
Quarter: 2024Q4

REPORT INFORMATION
  Report Type: Spontaneous
  Country: US (occurrence: US)
  Receive Date: 20241227
  Receipt Date: 20241227
  Transmission Date: 20250114
  Serious: No
  Sender: ABBVIE
  Company Number: US-ABBVIE-6053816

PATIENT
  Age: 30 Year
  Sex: Female

DRUGS (14)
  1. HUMIRA [Suspect]
     Active Substance: ADALIMUMAB
     Indication: Product used for unknown indication
     Dosage: INJECT 2 PENS ON DAY 1 THEN 1 SYRINGE ON DAY 15, THEN 1 SYRINGE ON DAY 30.?CITRATE FREE
     Route: 058
     Dates: start: 20220208
  2. HUMIRA [Suspect]
     Active Substance: ADALIMUMAB
  3. HUMIRA [Suspect]
     Active Substance: ADALIMUMAB
     Indication: Product used for unknown indication
     Dosage: HUMIRA 40 MG/0.8 ML?AS DIRECTED?DAY 2, THEN INJECT 80 MG SUB DAY 15
     Route: 058
     Dates: start: 20220713
  4. CLINDAMYCIN PHOSPHATE [Concomitant]
     Active Substance: CLINDAMYCIN PHOSPHATE
     Indication: Product used for unknown indication
     Dosage: 1 %
     Route: 061
     Dates: start: 20220706
  5. CLOBETASOL [Concomitant]
     Active Substance: CLOBETASOL
     Indication: Rash papular
     Dosage: 0.05 %?APPLY BID TO SWOLLEN BUMPS
     Route: 061
     Dates: start: 20221026
  6. COSENTYX [Concomitant]
     Active Substance: SECUKINUMAB
     Indication: Product used for unknown indication
     Dosage: 150 MG/ML?SC QWK X5WK
     Route: 058
     Dates: start: 20231228
  7. DOXYCYCLINE [Concomitant]
     Active Substance: DOXYCYCLINE
     Indication: Product used for unknown indication
     Dosage: HYCLATE
     Route: 048
     Dates: start: 20220706
  8. LEXAPRO [Concomitant]
     Active Substance: ESCITALOPRAM OXALATE
     Indication: Product used for unknown indication
     Route: 048
  9. MINOCYCLINE [Concomitant]
     Active Substance: MINOCYCLINE HYDROCHLORIDE
     Indication: Product used for unknown indication
     Route: 048
     Dates: start: 20230615
  10. OTEZLA [Concomitant]
     Active Substance: APREMILAST
     Indication: Product used for unknown indication
     Route: 048
  11. SPIRONOLACTONE [Suspect]
     Active Substance: SPIRONOLACTONE
     Indication: Product used for unknown indication
     Route: 048
  12. TRAMADOL [Concomitant]
     Active Substance: TRAMADOL
     Indication: Pain
     Dosage: 4-6 HRS
     Route: 048
     Dates: start: 20220706
  13. TRAZODONE [Concomitant]
     Active Substance: TRAZODONE HYDROCHLORIDE
     Indication: Product used for unknown indication
     Route: 048
  14. HYDROCHLOROTHIAZIDE\TRIAMTERENE [Concomitant]
     Active Substance: HYDROCHLOROTHIAZIDE\TRIAMTERENE
     Indication: Product used for unknown indication
     Dosage: 37.5-25 MG
     Route: 048

REACTIONS (5)
  - Hidradenitis [Unknown]
  - Acne pustular [Unknown]
  - Fistula [Unknown]
  - Purulent discharge [Unknown]
  - Fistula discharge [Unknown]
